FAERS Safety Report 7593189-7 (Version None)
Quarter: 2011Q3

REPORT INFORMATION
  Report Type: 
  Country: None (occurrence: None)
  Receive Date: 20110706
  Receipt Date: 20110629
  Transmission Date: 20111222
  Serious: Yes (Hospitalization)
  Sender: FDA-Public Use
  Company Number: US-ALEXION-A201001666

PATIENT
  Sex: Male

DRUGS (3)
  1. MULTI-VITAMINS [Concomitant]
     Dosage: UNK
  2. COUMADIN [Concomitant]
     Indication: PROPHYLAXIS
     Dosage: ADJUSTED Q2W
  3. SOLIRIS [Suspect]
     Indication: PAROXYSMAL NOCTURNAL HAEMOGLOBINURIA
     Dosage: 900 MG, Q2W
     Route: 042
     Dates: start: 20070321

REACTIONS (6)
  - HAEMOGLOBIN DECREASED [None]
  - URINARY TRACT OBSTRUCTION [None]
  - HAEMATOCRIT DECREASED [None]
  - NEPHROLITHIASIS [None]
  - INTERNATIONAL NORMALISED RATIO ABNORMAL [None]
  - URINARY TRACT DISORDER [None]
